FAERS Safety Report 25610174 (Version 1)
Quarter: 2025Q3

REPORT INFORMATION
  Report Type: Spontaneous
  Country: US (occurrence: US)
  Receive Date: 20250728
  Receipt Date: 20250728
  Transmission Date: 20251020
  Serious: No
  Sender: UROGEN PHARMA
  Company Number: US-UROGEN PHARMA LTD.-2025-UGN-000104

PATIENT

DRUGS (4)
  1. JELMYTO [Suspect]
     Active Substance: MITOMYCIN
     Indication: Transitional cell cancer of the renal pelvis and ureter
     Dosage: 11 MILLILITER, ONCE A WEEK (INSTILLATION), ANTEGRADE
     Dates: start: 20250506, end: 20250506
  2. JELMYTO [Suspect]
     Active Substance: MITOMYCIN
     Dosage: 11 MILLILITER, ONCE A WEEK (INSTILLATION), ANTEGRADE
     Dates: start: 20250520, end: 20250520
  3. JELMYTO [Suspect]
     Active Substance: MITOMYCIN
     Dosage: 11 MILLILITER, ONCE A WEEK (INSTILLATION), ANTEGRADE
     Dates: start: 20250527, end: 20250527
  4. JELMYTO [Suspect]
     Active Substance: MITOMYCIN
     Dosage: 11 MILLILITER, ONCE A WEEK (INSTILLATION), ANTEGRADE
     Dates: start: 20250603, end: 20250603

REACTIONS (1)
  - Rash [Unknown]

NARRATIVE: CASE EVENT DATE: 20250101
